FAERS Safety Report 20512497 (Version 8)
Quarter: 2024Q1

REPORT INFORMATION
  Report Type: Spontaneous
  Country: AU (occurrence: AU)
  Receive Date: 20220224
  Receipt Date: 20240329
  Transmission Date: 20240409
  Serious: Yes (Other)
  Sender: FDA-Public Use
  Company Number: AU-PFIZER INC-202200285330

PATIENT
  Age: 29 Year
  Sex: Male

DRUGS (19)
  1. ATORVASTATIN CALCIUM [Suspect]
     Active Substance: ATORVASTATIN CALCIUM
     Dosage: 80 MILLIGRAM
     Route: 065
  2. CLOZAPINE [Suspect]
     Active Substance: CLOZAPINE
     Indication: Schizophrenia
     Dosage: 200 MG
     Dates: start: 20190110
  3. CLOZAPINE [Suspect]
     Active Substance: CLOZAPINE
     Dosage: 350 MILLIGRAM
     Route: 065
  4. PANTOPRAZOLE [Suspect]
     Active Substance: PANTOPRAZOLE
     Dosage: 20 MILLIGRAM, QD
     Route: 065
  5. EDRONAX [Suspect]
     Active Substance: REBOXETINE MESYLATE
     Dosage: 12 MILLIGRAM, QD
     Route: 065
  6. EDRONAX [Suspect]
     Active Substance: REBOXETINE MESYLATE
     Dosage: UNK
     Route: 065
  7. ARIPIPRAZOLE [Suspect]
     Active Substance: ARIPIPRAZOLE
     Indication: Schizophrenia
     Dosage: 400 MG, MONTHLY (EVERY 4 WEEKS)
     Route: 030
  8. ATENOLOL [Suspect]
     Active Substance: ATENOLOL
     Dosage: 50 MILLIGRAM, QD
     Route: 065
  9. DIAZEPAM [Suspect]
     Active Substance: DIAZEPAM
     Indication: Anxiety
     Dosage: 1 DF
  10. DIAZEPAM [Suspect]
     Active Substance: DIAZEPAM
     Dosage: 5 MG, AS NEEDED
  11. DIAZEPAM [Suspect]
     Active Substance: DIAZEPAM
     Dosage: 5MG MANE
  12. METFORMIN HYDROCHLORIDE [Suspect]
     Active Substance: METFORMIN HYDROCHLORIDE
     Dosage: 1500 MILLIGRAM, QD
     Route: 065
  13. METOPROLOL TARTRATE [Concomitant]
     Active Substance: METOPROLOL TARTRATE
     Dosage: 25 MILLIGRAM, QD
  14. ESOMEPRAZOLE [Concomitant]
     Active Substance: ESOMEPRAZOLE
     Dosage: 40 MG
  15. SIMVASTATIN [Concomitant]
     Active Substance: SIMVASTATIN
     Dosage: 40 MG
  16. MIRTAZAPINE [Concomitant]
     Active Substance: MIRTAZAPINE
     Dosage: 30 MG
  17. FLUTICASONE PROPIONATE [Concomitant]
     Active Substance: FLUTICASONE PROPIONATE
     Dosage: 2 PUFFS NOCTE
  18. ENTRESTO [Concomitant]
     Active Substance: SACUBITRIL\VALSARTAN
     Dosage: 24 / 26MG BD
  19. ENTRESTO [Concomitant]
     Active Substance: SACUBITRIL\VALSARTAN
     Dosage: UNK, QD

REACTIONS (25)
  - Mitral valve incompetence [Unknown]
  - Syncope [Unknown]
  - Loss of consciousness [Unknown]
  - Dilated cardiomyopathy [Unknown]
  - Tricuspid valve incompetence [Unknown]
  - Pulmonary valve incompetence [Unknown]
  - Obesity [Unknown]
  - Cardiac disorder [Unknown]
  - Orthostatic hypotension [Unknown]
  - Tachycardia [Not Recovered/Not Resolved]
  - Dizziness [Unknown]
  - Dehydration [Unknown]
  - Blood triglycerides increased [Unknown]
  - Blood thyroid stimulating hormone increased [Unknown]
  - Blood cholesterol increased [Unknown]
  - Low density lipoprotein increased [Unknown]
  - Gamma-glutamyltransferase increased [Unknown]
  - Alanine aminotransferase increased [Unknown]
  - Eosinophilia [Unknown]
  - C-reactive protein increased [Unknown]
  - Heart rate decreased [Unknown]
  - Sinus tachycardia [Unknown]
  - Blood uric acid increased [Unknown]
  - Gamma-glutamyltransferase increased [Unknown]
  - Body mass index increased [Unknown]

NARRATIVE: CASE EVENT DATE: 20190326
